FAERS Safety Report 7005653-X (Version None)
Quarter: 2010Q3

REPORT INFORMATION
  Report Type: 
  Country: None (occurrence: None)
  Receive Date: 20100921
  Receipt Date: 20100910
  Transmission Date: 20110219
  Serious: Yes (Congenital Anomaly)
  Sender: FDA-Public Use
  Company Number: B0663670A

PATIENT

DRUGS (1)
  1. PAROXETINE HCL [Suspect]
     Indication: ANTIDEPRESSANT THERAPY

REACTIONS (2)
  - CARCINOGENIC EFFECT IN OFFSPRING [None]
  - DRUG EXPOSURE DURING PREGNANCY [None]
